FAERS Safety Report 24630977 (Version 1)
Quarter: 2024Q4

REPORT INFORMATION
  Report Type: Spontaneous
  Country: US (occurrence: None)
  Receive Date: 20241116
  Receipt Date: 20241116
  Transmission Date: 20250115
  Serious: Yes (Hospitalization)
  Sender: Public
  Company Number: None

PATIENT
  Age: 52 Year
  Sex: Male
  Weight: 97.1 kg

DRUGS (2)
  1. SYNJARDY XR [Suspect]
     Active Substance: EMPAGLIFLOZIN\METFORMIN HYDROCHLORIDE
     Indication: Diabetes mellitus
     Dosage: FREQUENCY : DAILY;?
     Route: 048
     Dates: start: 20241112, end: 20241115
  2. MOUNJARO [Suspect]
     Active Substance: TIRZEPATIDE

REACTIONS (8)
  - Therapy change [None]
  - Lethargy [None]
  - Pallor [None]
  - Vomiting [None]
  - Headache [None]
  - Acute kidney injury [None]
  - Hyperkalaemia [None]
  - Diabetic ketoacidosis [None]

NARRATIVE: CASE EVENT DATE: 20241115
